FAERS Safety Report 16149200 (Version 1)
Quarter: 2019Q2

REPORT INFORMATION
  Report Type: Spontaneous
  Country: US (occurrence: US)
  Receive Date: 20190402
  Receipt Date: 20190402
  Transmission Date: 20190711
  Serious: No
  Sender: FDA-Public Use
  Company Number: US-BAUSCH-BL-2019-007335

PATIENT
  Age: 53 Year
  Sex: Female
  Weight: 51.71 kg

DRUGS (3)
  1. SERTRALINE [Suspect]
     Active Substance: SERTRALINE HYDROCHLORIDE
     Indication: INSOMNIA
  2. SERTRALINE [Suspect]
     Active Substance: SERTRALINE HYDROCHLORIDE
     Indication: ANXIETY
     Route: 048
     Dates: start: 201812
  3. ATIVAN [Suspect]
     Active Substance: LORAZEPAM
     Indication: SLEEP DISORDER
     Dosage: HALF TABLET, AS NEEDED (TOOK AT 2AM IN MORNING)
     Route: 048

REACTIONS (2)
  - Treatment noncompliance [Unknown]
  - Wrong technique in product usage process [Unknown]
